FAERS Safety Report 5870913-2 (Version None)
Quarter: 2008Q3

REPORT INFORMATION
  Report Type: 
  Country: None (occurrence: None)
  Receive Date: 20080904
  Receipt Date: 20080829
  Transmission Date: 20090109
  Serious: Yes (Hospitalization, Other)
  Sender: FDA-Public Use
  Company Number: BE-ASTRAZENECA-2008AP06847

PATIENT
  Age: 20815 Day
  Sex: Female

DRUGS (1)
  1. TAMOXIFEN CITRATE [Suspect]
     Indication: BREAST CANCER IN SITU
     Route: 048
     Dates: start: 20071017

REACTIONS (1)
  - TRANSIENT ISCHAEMIC ATTACK [None]
